FAERS Safety Report 14238505 (Version 1)
Quarter: 2017Q4

REPORT INFORMATION
  Report Type: Spontaneous
  Country: FR (occurrence: FR)
  Receive Date: 20171130
  Receipt Date: 20171130
  Transmission Date: 20180321
  Serious: Yes (Other)
  Sender: FDA-Public Use
  Company Number: PHHY2017FR173917

PATIENT
  Age: 83 Year
  Sex: Female

DRUGS (5)
  1. CARBOPLATINE [Concomitant]
     Active Substance: CARBOPLATIN
     Indication: UTERINE CANCER
     Dosage: 310 MG, QD
     Route: 042
     Dates: start: 20170512, end: 20170914
  2. FLUOROURACIL PFIZER [Suspect]
     Active Substance: FLUOROURACIL
     Indication: UTERINE CANCER
     Dosage: 1 DF, CYCLIC
     Route: 042
     Dates: start: 20170512, end: 20170914
  3. ZOPHREN [Suspect]
     Active Substance: ONDANSETRON
     Indication: ANTIEMETIC SUPPORTIVE CARE
     Dosage: 1 DF, CYCLIC
     Route: 042
     Dates: start: 20170512, end: 20170914
  4. EMEND [Concomitant]
     Active Substance: APREPITANT
     Indication: ANTIEMETIC SUPPORTIVE CARE
     Dosage: UNK (125 MG ON D1; 80 MG ON D3 AND D4)
     Route: 048
     Dates: start: 20170512, end: 20170914
  5. SOLU-MEDROL [Concomitant]
     Active Substance: METHYLPREDNISOLONE SODIUM SUCCINATE
     Indication: ANTIEMETIC SUPPORTIVE CARE
     Dosage: 1 DF, CYCLIC
     Route: 042
     Dates: start: 20170512, end: 20170914

REACTIONS (2)
  - Extravasation [Recovering/Resolving]
  - Vasculitis [Recovering/Resolving]

NARRATIVE: CASE EVENT DATE: 20170914
